FAERS Safety Report 6969971-3 (Version None)
Quarter: 2010Q3

REPORT INFORMATION
  Report Type: 
  Country: None (occurrence: None)
  Receive Date: 20100908
  Receipt Date: 20100903
  Transmission Date: 20110219
  Serious: Yes (Death)
  Sender: FDA-Public Use
  Company Number: PHHY2010JP56480

PATIENT
  Age: 50 Year
  Sex: Male

DRUGS (6)
  1. TEGRETOL [Suspect]
     Dosage: UNK
  2. ZOLPIDEM [Suspect]
     Dosage: UNK
  3. CHLORPROMAZINE [Suspect]
     Dosage: UNK
  4. PROMETHAZINE [Suspect]
     Dosage: UNK
  5. PHENOBARBITAL [Suspect]
     Dosage: UNK
  6. NITRAZEPAM [Suspect]
     Dosage: UNK

REACTIONS (1)
  - DRUG TOXICITY [None]
